FAERS Safety Report 6907378-5 (Version None)
Quarter: 2010Q3

REPORT INFORMATION
  Report Type: 
  Country: None (occurrence: None)
  Receive Date: 20100802
  Receipt Date: 20100719
  Transmission Date: 20110219
  Serious: Yes (Life-Threatening, Hospitalization)
  Sender: FDA-Public Use
  Company Number: MYVW-PR-1007S-0049

PATIENT
  Age: 76 Year
  Sex: Female
  Weight: 81.6475 kg

DRUGS (9)
  1. MYOVIEW [Suspect]
     Indication: CHEST PAIN
     Dosage: 414.4 MBQ, SINGLE DOSE, I.V.; 1207.1 MBG, SINGLE DOSE, I.V.
     Route: 042
     Dates: start: 20100602, end: 20100602
  2. MYOVIEW [Suspect]
     Indication: CHEST PAIN
     Dosage: 414.4 MBQ, SINGLE DOSE, I.V.; 1207.1 MBG, SINGLE DOSE, I.V.
     Route: 042
     Dates: start: 20100602, end: 20100602
  3. PERSANTINE [Suspect]
     Dosage: 46.5 MG, SINGLE DOSE, I.V.
     Route: 042
     Dates: start: 20100602, end: 20100602
  4. AMINOPHYLLINE [Suspect]
     Dosage: 100 MG, SINGLE DOSE, I.V.
     Route: 042
     Dates: start: 20100602, end: 20100602
  5. TECHNETIUM (TC99M) (SODIUM PERTECHNETATE TC99M) [Concomitant]
  6. ESOMEPRAZOLE MAGNESIUM (NEXIUM) [Concomitant]
  7. SYNTHROID [Concomitant]
  8. HYDROCHLOROTHIAZIDE [Concomitant]
  9. TYLENOL W/ CODEINE NO. 3 [Concomitant]

REACTIONS (5)
  - BLISTER [None]
  - DIARRHOEA [None]
  - DIZZINESS [None]
  - RENAL FAILURE [None]
  - SKIN DISCOLOURATION [None]
